FAERS Safety Report 10030885 (Version 2)
Quarter: 2014Q1

REPORT INFORMATION
  Report Type: Spontaneous
  Country: US (occurrence: US)
  Receive Date: 20140323
  Receipt Date: 20140323
  Transmission Date: 20141002
  Serious: No
  Sender: FDA-Public Use
  Company Number: US-ALLERGAN-1315685US

PATIENT
  Age: 50 Year
  Sex: Female

DRUGS (1)
  1. LATISSE 0.03% [Suspect]
     Indication: GROWTH OF EYELASHES
     Dosage: 2 GTT, UNK
     Route: 061
     Dates: start: 2011, end: 20130929

REACTIONS (6)
  - Scleral disorder [Not Recovered/Not Resolved]
  - Adverse drug reaction [Not Recovered/Not Resolved]
  - Eye discharge [Not Recovered/Not Resolved]
  - Eye pain [Not Recovered/Not Resolved]
  - Dry eye [Not Recovered/Not Resolved]
  - Dry eye [Not Recovered/Not Resolved]
